FAERS Safety Report 6548864-X (Version None)
Quarter: 2010Q1

REPORT INFORMATION
  Report Type: 
  Country: None (occurrence: None)
  Receive Date: 20100124
  Receipt Date: 20091124
  Transmission Date: 20100710
  Serious: No
  Sender: FDA-Public Use
  Company Number: US-ALLERGAN-0916324US

PATIENT
  Age: 71 Year
  Sex: Female

DRUGS (3)
  1. RESTASIS [Suspect]
     Indication: DRY EYE
     Dosage: 1 GTT, BID
     Route: 047
     Dates: start: 20091001, end: 20091114
  2. HYDROCHLOROTHIAZIDE [Concomitant]
  3. ZOLOFT [Concomitant]
     Dosage: 1/2 PILL, } 6 MONTHS

REACTIONS (2)
  - OROPHARYNGEAL DISCOMFORT [None]
  - SENSORY DISTURBANCE [None]
